FAERS Safety Report 6445969-9 (Version None)
Quarter: 2009Q4

REPORT INFORMATION
  Report Type: 
  Country: None (occurrence: None)
  Receive Date: 20091119
  Receipt Date: 20090422
  Transmission Date: 20100525
  Serious: No
  Sender: FDA-Public Use
  Company Number: A0780139A

PATIENT
  Age: 58 Year
  Sex: Female

DRUGS (9)
  1. BUPROPION HYDROCHLORIDE [Suspect]
     Indication: DEPRESSION
     Dosage: 300MG TWICE PER DAY
     Route: 048
     Dates: start: 20040101, end: 20080101
  2. WELLBUTRIN SR [Suspect]
     Indication: DEPRESSION
     Dosage: 300MG TWICE PER DAY
     Route: 048
     Dates: start: 20080101
  3. EFFEXOR [Concomitant]
  4. RITALIN [Concomitant]
  5. TRAZODONE HCL [Concomitant]
  6. BUSPAR [Concomitant]
  7. ADVAIR DISKUS 100/50 [Concomitant]
  8. FLONASE [Concomitant]
  9. LEVOTHYROXINE SODIUM [Concomitant]

REACTIONS (3)
  - APHRODISIAC THERAPY [None]
  - FOOD CRAVING [None]
  - MUSCLE TWITCHING [None]
